FAERS Safety Report 9165823 (Version 1)
Quarter: 2013Q1

REPORT INFORMATION
  Report Type: Spontaneous
  Country: SE (occurrence: SE)
  Receive Date: 20130315
  Receipt Date: 20130315
  Transmission Date: 20140127
  Serious: Yes (Death, Hospitalization, Other)
  Sender: FDA-Public Use
  Company Number: SE-ROCHE-1200866

PATIENT
  Age: 37 Year
  Sex: Male

DRUGS (14)
  1. AVASTIN [Suspect]
     Indication: RECTAL NEOPLASM
     Route: 065
  2. AVASTIN [Suspect]
     Indication: METASTASES TO PERITONEUM
  3. AVASTIN [Suspect]
     Indication: METASTASES TO LUNG
  4. FLUOROURACIL [Suspect]
     Indication: RECTAL NEOPLASM
     Route: 065
  5. FLUOROURACIL [Suspect]
     Indication: METASTASES TO PERITONEUM
  6. FLUOROURACIL [Suspect]
     Indication: METASTASES TO LUNG
  7. FOLINIC ACID [Suspect]
     Indication: RECTAL NEOPLASM
     Route: 065
  8. FOLINIC ACID [Suspect]
     Indication: METASTASES TO PERITONEUM
  9. FOLINIC ACID [Suspect]
     Indication: METASTASES TO LUNG
  10. IRINOTECAN [Suspect]
     Indication: RECTAL NEOPLASM
     Route: 065
  11. IRINOTECAN [Suspect]
     Indication: METASTASES TO PERITONEUM
  12. IRINOTECAN [Suspect]
     Indication: METASTASES TO LUNG
  13. CAMPTO [Concomitant]
     Route: 065
     Dates: start: 201202
  14. CETUXIMAB [Concomitant]
     Route: 065
     Dates: start: 201202

REACTIONS (5)
  - Sepsis [Fatal]
  - Necrotising fasciitis [Fatal]
  - Necrotising fasciitis [Fatal]
  - Disease progression [Unknown]
  - Metastases to liver [Unknown]
